FAERS Safety Report 4786589-1 (Version None)
Quarter: 2005Q3

REPORT INFORMATION
  Report Type: 
  Country: None (occurrence: None)
  Receive Date: 20050927
  Receipt Date: 20050602
  Transmission Date: 20060218
  Serious: No
  Sender: FDA-Public Use
  Company Number: USA050699567

PATIENT
  Age: 45 Year
  Sex: Male

DRUGS (5)
  1. STRATTERA [Suspect]
     Dosage: 40 MG DAY
     Dates: start: 20041201
  2. WELLBUTRIN [Concomitant]
  3. DEPAKOTE (VLPROATE SEMISODIUM) [Concomitant]
  4. ALLEGRA [Concomitant]
  5. SIBERIAN GINSENG [Concomitant]

REACTIONS (8)
  - CENTRAL NERVOUS SYSTEM STIMULATION [None]
  - DRUG SCREEN POSITIVE [None]
  - ENERGY INCREASED [None]
  - HEART RATE INCREASED [None]
  - HOT FLUSH [None]
  - HYPERTENSION [None]
  - LOSS OF EMPLOYMENT [None]
  - URINE AMPHETAMINE POSITIVE [None]
